FAERS Safety Report 22177151 (Version 3)
Quarter: 2023Q2

REPORT INFORMATION
  Report Type: Spontaneous
  Country: CH (occurrence: None)
  Receive Date: 20230405
  Receipt Date: 20230505
  Transmission Date: 20230721
  Serious: Yes (Hospitalization)
  Sender: FDA-Public Use
  Company Number: 2023A075704

PATIENT
  Age: 62 Year
  Sex: Female
  Weight: 46 kg

DRUGS (14)
  1. FASENRA [Suspect]
     Active Substance: BENRALIZUMAB
     Route: 058
  2. TEZSPIRE [Suspect]
     Active Substance: TEZEPELUMAB-EKKO
     Indication: Asthma
     Route: 058
     Dates: start: 20220908
  3. TEZSPIRE [Suspect]
     Active Substance: TEZEPELUMAB-EKKO
     Indication: Eosinophilia
     Route: 058
     Dates: start: 20220908
  4. TEZSPIRE [Suspect]
     Active Substance: TEZEPELUMAB-EKKO
     Indication: Asthma
     Route: 058
     Dates: start: 20221018
  5. TEZSPIRE [Suspect]
     Active Substance: TEZEPELUMAB-EKKO
     Indication: Eosinophilia
     Route: 058
     Dates: start: 20221018
  6. TEZSPIRE [Suspect]
     Active Substance: TEZEPELUMAB-EKKO
     Indication: Asthma
     Route: 058
     Dates: start: 20221115
  7. TEZSPIRE [Suspect]
     Active Substance: TEZEPELUMAB-EKKO
     Indication: Eosinophilia
     Route: 058
     Dates: start: 20221115
  8. PREDNISONE [Concomitant]
     Active Substance: PREDNISONE
  9. INDACATEROL [Concomitant]
     Active Substance: INDACATEROL
     Indication: Asthma
     Dosage: ONCE/SINGLE ADMINISTRATION
     Route: 055
     Dates: start: 2019
  10. PULMICORT TURBUHALER [Concomitant]
     Active Substance: BUDESONIDE
     Indication: Asthma
     Dosage: ONCE/SINGLE ADMINISTRATION
     Route: 055
     Dates: start: 2019
  11. DYMISTA [Concomitant]
     Active Substance: AZELASTINE HYDROCHLORIDE\FLUTICASONE PROPIONATE
     Indication: Rhinitis
     Dosage: ONCE/SINGLE ADMINISTRATION
     Route: 055
     Dates: start: 2019
  12. ZYRTEC [Concomitant]
     Active Substance: CETIRIZINE HYDROCHLORIDE
     Indication: Hypersensitivity
     Dosage: ONCE/SINGLE ADMINISTRATION
     Route: 048
  13. AZYTHROMYCINE [Concomitant]
     Indication: Asthma
     Route: 048
     Dates: start: 2020
  14. DUPIXENT [Concomitant]
     Active Substance: DUPILUMAB

REACTIONS (5)
  - Asthma [Unknown]
  - Vertigo [Unknown]
  - Back pain [Unknown]
  - Arrhythmia [Not Recovered/Not Resolved]
  - Haemodynamic instability [Unknown]

NARRATIVE: CASE EVENT DATE: 20220908
